FAERS Safety Report 9981119 (Version 1)
Quarter: 2014Q1

REPORT INFORMATION
  Report Type: Spontaneous
  Country: US (occurrence: None)
  Receive Date: 20140306
  Receipt Date: 20140306
  Transmission Date: 20141002
  Serious: No
  Sender: FDA-Public Use
  Company Number: None

PATIENT
  Age: 63 Year
  Sex: Male
  Weight: 88.45 kg

DRUGS (2)
  1. ROPINEROLE [Suspect]
     Indication: PARKINSON^S DISEASE
     Dosage: 1/2 TAB. AM AT NOON, 1 TAB. AT HS, BY MOUTH
     Dates: start: 201201, end: 20131130
  2. ROPINEROLE [Suspect]
     Indication: TREMOR
     Dosage: 1/2 TAB. AM AT NOON, 1 TAB. AT HS, BY MOUTH
     Dates: start: 201201, end: 20131130

REACTIONS (9)
  - Somnolence [None]
  - Lethargy [None]
  - Mood altered [None]
  - Personality change [None]
  - Flat affect [None]
  - Asthenia [None]
  - Impaired driving ability [None]
  - Bradykinesia [None]
  - Depressed level of consciousness [None]
